FAERS Safety Report 6055683-X (Version None)
Quarter: 2009Q1

REPORT INFORMATION
  Report Type: 
  Country: None (occurrence: None)
  Receive Date: 20090126
  Receipt Date: 20090109
  Transmission Date: 20090719
  Serious: Yes (Death, Hospitalization)
  Sender: FDA-Public Use
  Company Number: B0554717A

PATIENT
  Sex: 0

DRUGS (2)
  1. DIGOXIN [Suspect]
  2. VENLAFAXINE HCL [Suspect]

REACTIONS (3)
  - ARRHYTHMIA [None]
  - SYNCOPE [None]
  - THERAPEUTIC AGENT TOXICITY [None]
